FAERS Safety Report 14146539 (Version 2)
Quarter: 2017Q4

REPORT INFORMATION
  Report Type: Spontaneous
  Country: US (occurrence: US)
  Receive Date: 20171031
  Receipt Date: 20171121
  Transmission Date: 20180321
  Serious: No
  Sender: FDA-Public Use
  Company Number: US-PFIZER INC-2017395599

PATIENT
  Age: 58 Year
  Sex: Male
  Weight: 68 kg

DRUGS (1)
  1. CHAPSTICK TOTAL HYDRATION [Suspect]
     Active Substance: COSMETICS
     Indication: CHAPPED LIPS
     Dosage: UNK, 3X/DAY (3 TIMES)
     Dates: start: 20170710, end: 20170815

REACTIONS (4)
  - Nausea [Recovered/Resolved]
  - Dysgeusia [Recovered/Resolved]
  - Product taste abnormal [Recovered/Resolved]
  - Malaise [Recovered/Resolved]

NARRATIVE: CASE EVENT DATE: 201707
